FAERS Safety Report 19922870 (Version 1)
Quarter: 2021Q4

REPORT INFORMATION
  Report Type: Spontaneous
  Country: CA (occurrence: CA)
  Receive Date: 20211006
  Receipt Date: 20211006
  Transmission Date: 20220303
  Serious: Yes (Hospitalization)
  Sender: FDA-Public Use
  Company Number: CA-TEVA-2021-CA-1961661

PATIENT
  Age: 77 Year
  Sex: Male
  Weight: 84 kg

DRUGS (19)
  1. SPIRONOLACTONE [Suspect]
     Active Substance: SPIRONOLACTONE
     Indication: Cardiac failure
     Dosage: 12.5 MILLIGRAM DAILY;
     Route: 048
  2. FUROSEMIDE [Suspect]
     Active Substance: FUROSEMIDE
     Indication: Cardiac failure
     Dosage: 80 MILLIGRAM DAILY;
     Route: 048
  3. ACETAMINOPHEN [Concomitant]
     Active Substance: ACETAMINOPHEN
  4. ALENDRONATE [Concomitant]
     Active Substance: ALENDRONATE SODIUM
  5. ALFUZOSIN [Concomitant]
     Active Substance: ALFUZOSIN
  6. AVENTYL [Concomitant]
     Active Substance: NORTRIPTYLINE HYDROCHLORIDE
  7. CALCIUM\VITAMIN D [Concomitant]
     Active Substance: CALCIUM\VITAMIN D
  8. DILTIAZEM [Concomitant]
     Active Substance: DILTIAZEM
  9. DOCUSATE SODIUM [Concomitant]
     Active Substance: DOCUSATE SODIUM
  10. ELIQUIS [Concomitant]
     Active Substance: APIXABAN
  11. IMBRUVICA [Concomitant]
     Active Substance: IBRUTINIB
  12. METFORMIN [Concomitant]
     Active Substance: METFORMIN HYDROCHLORIDE
  13. PERINDOPRIL [Concomitant]
     Active Substance: PERINDOPRIL
  14. POTASSIUM [Concomitant]
     Active Substance: POTASSIUM
  15. ROSUVASTATIN [Concomitant]
     Active Substance: ROSUVASTATIN
     Route: 065
  16. ALBUTEROL [Concomitant]
     Active Substance: ALBUTEROL
  17. TRAZODONE [Concomitant]
     Active Substance: TRAZODONE HYDROCHLORIDE
  18. GLYCOPYRRONIUM\INDACATEROL [Concomitant]
     Active Substance: GLYCOPYRRONIUM\INDACATEROL
  19. VENLAFAXINE HYDROCHLORIDE [Concomitant]
     Active Substance: VENLAFAXINE HYDROCHLORIDE

REACTIONS (4)
  - Acute kidney injury [Recovered/Resolved]
  - Fall [Recovered/Resolved]
  - Hyperkalaemia [Recovered/Resolved]
  - Orthostatic hypotension [Recovered/Resolved]
